FAERS Safety Report 16495198 (Version 1)
Quarter: 2019Q2

REPORT INFORMATION
  Report Type: Spontaneous
  Country: US (occurrence: US)
  Receive Date: 20190628
  Receipt Date: 20190628
  Transmission Date: 20190711
  Serious: No
  Sender: FDA-Public Use
  Company Number: US-HORIZON-KRY-0427-2019

PATIENT
  Age: 59 Year
  Sex: Male

DRUGS (2)
  1. KRYSTEXXA [Suspect]
     Active Substance: PEGLOTICASE
     Indication: GOUT
     Dosage: 8 MG Q2WEEKS
     Route: 042
     Dates: start: 20190523
  2. COLCHICINE. [Concomitant]
     Active Substance: COLCHICINE

REACTIONS (2)
  - Blood uric acid decreased [Not Recovered/Not Resolved]
  - Visual impairment [Not Recovered/Not Resolved]

NARRATIVE: CASE EVENT DATE: 20190523
